FAERS Safety Report 17149614 (Version 1)
Quarter: 2019Q4

REPORT INFORMATION
  Report Type: Spontaneous
  Country: US (occurrence: US)
  Receive Date: 20191213
  Receipt Date: 20191213
  Transmission Date: 20200122
  Serious: Yes (Death, Other)
  Sender: FDA-Public Use
  Company Number: US-AMGEN-USASP2019205783

PATIENT

DRUGS (2)
  1. BESPONSA [Concomitant]
     Active Substance: INOTUZUMAB OZOGAMICIN
     Dosage: UNK
  2. BLINCYTO [Suspect]
     Active Substance: BLINATUMOMAB
     Indication: PRODUCT USED FOR UNKNOWN INDICATION
     Dosage: UNK
     Route: 065

REACTIONS (4)
  - Death [Fatal]
  - Liver function test increased [Unknown]
  - Infection [Unknown]
  - Disease recurrence [Unknown]
